FAERS Safety Report 12531068 (Version 1)
Quarter: 2016Q3

REPORT INFORMATION
  Report Type: Spontaneous
  Country: US (occurrence: None)
  Receive Date: 20160705
  Receipt Date: 20160705
  Transmission Date: 20161109
  Serious: Yes (Hospitalization)
  Sender: FDA-Public Use
  Company Number: None

PATIENT
  Age: 12 Year
  Sex: Female
  Weight: 52.3 kg

DRUGS (23)
  1. ONCASPAR [Suspect]
     Active Substance: PEGASPARGASE
     Dates: end: 20160419
  2. MERCAPTOPURINE. [Suspect]
     Active Substance: MERCAPTOPURINE
     Dates: end: 20160506
  3. CYTARABINE. [Suspect]
     Active Substance: CYTARABINE
     Dates: end: 20160311
  4. OXYCODONE [Concomitant]
     Active Substance: OXYCODONE
  5. SUCRALFATE. [Concomitant]
     Active Substance: SUCRALFATE
  6. METHOTREXATE. [Suspect]
     Active Substance: METHOTREXATE
     Dates: end: 20160502
  7. DAUNORUBICIN [Suspect]
     Active Substance: DAUNORUBICIN
     Dates: end: 20160203
  8. PREDNISONE. [Suspect]
     Active Substance: PREDNISONE
     Dates: end: 20160209
  9. MONTELUKAST SODIUM. [Concomitant]
     Active Substance: MONTELUKAST SODIUM
  10. DIPHENHYDRAMINE. [Concomitant]
     Active Substance: DIPHENHYDRAMINE
  11. PANTOPRAZOLE SODIUM. [Concomitant]
     Active Substance: PANTOPRAZOLE SODIUM
  12. VORICONAZOLE. [Concomitant]
     Active Substance: VORICONAZOLE
  13. VINCRISTINE SULFATE. [Suspect]
     Active Substance: VINCRISTINE SULFATE
     Dates: end: 20160502
  14. CYCLOSPHOSPHAMIDE [Suspect]
     Active Substance: CYCLOPHOSPHAMIDE
     Dates: end: 20160401
  15. ONDANSETRON [Concomitant]
     Active Substance: ONDANSETRON
  16. TOPIRAMATE. [Concomitant]
     Active Substance: TOPIRAMATE
  17. OLANZAPINE. [Concomitant]
     Active Substance: OLANZAPINE
  18. BUTALBITAL-ASA-CAFF-CODEINE [Concomitant]
  19. CETIRIZINE [Concomitant]
     Active Substance: CETIRIZINE HYDROCHLORIDE
  20. POTASSIUM CHLORIDE. [Concomitant]
     Active Substance: POTASSIUM CHLORIDE
  21. PROCHLORPERAZINE. [Concomitant]
     Active Substance: PROCHLORPERAZINE
  22. BACTRIM [Concomitant]
     Active Substance: SULFAMETHOXAZOLE\TRIMETHOPRIM
  23. CHLORHEXIDINE [Concomitant]
     Active Substance: CHLORHEXIDINE

REACTIONS (3)
  - Hepatomegaly [None]
  - Hepatotoxicity [None]
  - Jaundice [None]

NARRATIVE: CASE EVENT DATE: 20160513
